FAERS Safety Report 4559400-1 (Version None)
Quarter: 2005Q1

REPORT INFORMATION
  Report Type: 
  Country: None (occurrence: None)
  Receive Date: 20050120
  Receipt Date: 20050120
  Transmission Date: 20050727
  Serious: Yes (Hospitalization)
  Sender: FDA-Public Use
  Company Number: None

PATIENT
  Age: 72 Year
  Sex: Male

DRUGS (12)
  1. LISINOPRIL [Suspect]
     Indication: HYPERTENSION
     Dosage: 40 MG [QD -} BID]
  2. IBUPROFEN [Suspect]
     Indication: ARTHRITIS
     Dosage: 800 MG
  3. SIMVASTATIN [Concomitant]
  4. DOCUSATE [Concomitant]
  5. ASPIRIN [Concomitant]
  6. PRAZOSIN HCL [Concomitant]
  7. METOPROLOL TARTRATE [Concomitant]
  8. LORATADINE [Concomitant]
  9. METHOCARBAMOL [Concomitant]
  10. HYDROCHLOROTHIAZIDE [Concomitant]
  11. ALLOPURINOL [Concomitant]
  12. NEFAZODONE HCL [Concomitant]

REACTIONS (4)
  - ASTHENIA [None]
  - BENIGN PROSTATIC HYPERPLASIA [None]
  - OBSTRUCTION [None]
  - RENAL FAILURE ACUTE [None]
